FAERS Safety Report 20837708 (Version 1)
Quarter: 2022Q2

REPORT INFORMATION
  Report Type: Spontaneous
  Country: US (occurrence: US)
  Receive Date: 20220517
  Receipt Date: 20220517
  Transmission Date: 20220721
  Serious: No
  Sender: FDA-Public Use
  Company Number: US-BAYER-2022A066526

PATIENT
  Age: 69 Year
  Sex: Female

DRUGS (1)
  1. MIRALAX [Suspect]
     Active Substance: POLYETHYLENE GLYCOL 3350
     Indication: Irritable bowel syndrome
     Dosage: 2 CAPFULS, QD
     Route: 048
     Dates: start: 2021

REACTIONS (3)
  - Incorrect product administration duration [Unknown]
  - Abdominal distension [Unknown]
  - Extra dose administered [Unknown]
